FAERS Safety Report 14554193 (Version 1)
Quarter: 2018Q1

REPORT INFORMATION
  Report Type: Spontaneous
  Country: US (occurrence: US)
  Receive Date: 20180220
  Receipt Date: 20180220
  Transmission Date: 20180509
  Serious: No
  Sender: FDA-Public Use
  Company Number: US-ASTRAZENECA-2018SE20630

PATIENT
  Age: 30536 Day
  Sex: Female
  Weight: 72.6 kg

DRUGS (2)
  1. ELIQUIS [Concomitant]
     Active Substance: APIXABAN
     Indication: ANTICOAGULANT THERAPY
  2. BYDUREON [Suspect]
     Active Substance: EXENATIDE
     Route: 058
     Dates: start: 2012

REACTIONS (5)
  - Dizziness [Recovering/Resolving]
  - Underdose [Not Recovered/Not Resolved]
  - Fear of injection [Recovered/Resolved]
  - Injection site haemorrhage [Recovered/Resolved]
  - Device malfunction [Unknown]

NARRATIVE: CASE EVENT DATE: 20180214
